FAERS Safety Report 5824310-6 (Version None)
Quarter: 2008Q3

REPORT INFORMATION
  Report Type: 
  Country: None (occurrence: None)
  Receive Date: 20080728
  Receipt Date: 20080724
  Transmission Date: 20090109
  Serious: Yes (Hospitalization)
  Sender: FDA-Public Use
  Company Number: JP-AVENTIS-200812281JP

PATIENT
  Sex: Female

DRUGS (2)
  1. TAXOTERE [Suspect]
     Indication: OVARIAN CANCER
     Route: 041
  2. TOPOTECIN [Suspect]
     Indication: OVARIAN CANCER

REACTIONS (1)
  - HYPOGLYCAEMIA [None]
